FAERS Safety Report 8618020-X (Version None)
Quarter: 2012Q3

REPORT INFORMATION
  Report Type: 
  Country: None (occurrence: None)
  Receive Date: 20120824
  Receipt Date: 20120212
  Transmission Date: 20120928
  Serious: No
  Sender: FDA-Public Use
  Company Number: PR-ASTRAZENECA-2012SE06804

PATIENT
  Age: 68 Year
  Sex: Female

DRUGS (2)
  1. SYMBICORT [Suspect]
     Indication: ASTHMA
     Dosage: 160/4.5MCG TWO PUFFS BID
     Route: 055
  2. VASOTEC [Concomitant]

REACTIONS (1)
  - CHEST PAIN [None]
